FAERS Safety Report 5324440-1 (Version None)
Quarter: 2007Q2

REPORT INFORMATION
  Report Type: 
  Country: None (occurrence: None)
  Receive Date: 20070514
  Receipt Date: 20070503
  Transmission Date: 20071010
  Serious: Yes (Life-Threatening, Hospitalization, Other)
  Sender: FDA-Public Use
  Company Number: US-PFIZER INC-2007001594

PATIENT
  Age: 23 Year
  Sex: Male

DRUGS (5)
  1. GEODON [Suspect]
     Dates: start: 20060101, end: 20061201
  2. WELLBUTRIN [Concomitant]
     Dosage: DAILY DOSE:300MG
  3. EFFEXOR XR [Concomitant]
     Dosage: DAILY DOSE:225MG
  4. KLONOPIN [Concomitant]
  5. ADVIL [Concomitant]

REACTIONS (1)
  - COMPARTMENT SYNDROME [None]
